FAERS Safety Report 7945520-8 (Version None)
Quarter: 2011Q4

REPORT INFORMATION
  Report Type: 
  Country: None (occurrence: None)
  Receive Date: 20111129
  Receipt Date: 20111123
  Transmission Date: 20120403
  Serious: Yes (Hospitalization, Other)
  Sender: FDA-Public Use
  Company Number: SE-ELI_LILLY_AND_COMPANY-SE201111001248

PATIENT
  Sex: Male

DRUGS (9)
  1. PRIMPERAN TAB [Concomitant]
  2. CISPLATIN [Concomitant]
     Indication: NEOPLASM MALIGNANT
     Dosage: UNK
     Route: 042
     Dates: start: 20110701
  3. EMEND [Concomitant]
  4. DULCIVIT [Concomitant]
  5. ZOLPIDEM [Concomitant]
  6. OMEPRAZOLE [Concomitant]
  7. ALIMTA [Suspect]
     Indication: LUNG NEOPLASM MALIGNANT
     Dosage: UNK, UNKNOWN
     Route: 042
     Dates: start: 20110701
  8. ONDANSETRON [Concomitant]
  9. POLYETHYLENE GLYCOL [Concomitant]

REACTIONS (3)
  - SYNCOPE [None]
  - CONFUSIONAL STATE [None]
  - FATIGUE [None]
